FAERS Safety Report 25340621 (Version 3)
Quarter: 2025Q2

REPORT INFORMATION
  Report Type: Spontaneous
  Country: US (occurrence: US)
  Receive Date: 20250521
  Receipt Date: 20250626
  Transmission Date: 20250716
  Serious: Yes (Other)
  Sender: SANOFI AVENTIS
  Company Number: US-SA-2025SA144167

PATIENT
  Age: 44 Year
  Sex: Female
  Weight: 68.18 kg

DRUGS (13)
  1. DUPIXENT [Suspect]
     Active Substance: DUPILUMAB
     Indication: Product used for unknown indication
     Dosage: 300 MG, QOW
     Route: 058
     Dates: start: 2024
  2. TIZANIDINE [Concomitant]
     Active Substance: TIZANIDINE
  3. UBRELVY [Concomitant]
     Active Substance: UBROGEPANT
  4. GABAPENTIN [Concomitant]
     Active Substance: GABAPENTIN
  5. METHOCARBAMOL [Concomitant]
     Active Substance: METHOCARBAMOL
  6. METHYLPREDNISOLONE [Concomitant]
     Active Substance: METHYLPREDNISOLONE
  7. ACETAMINOPHEN\OXYCODONE HYDROCHLORIDE [Concomitant]
     Active Substance: ACETAMINOPHEN\OXYCODONE HYDROCHLORIDE
  8. OPZELURA [Concomitant]
     Active Substance: RUXOLITINIB PHOSPHATE
  9. IBUPROFEN [Concomitant]
     Active Substance: IBUPROFEN
  10. CHLORHEXIDINE GLUCONATE [Concomitant]
     Active Substance: CHLORHEXIDINE GLUCONATE
  11. AMOXICILLIN [Concomitant]
     Active Substance: AMOXICILLIN
  12. CEFADROXIL [Concomitant]
     Active Substance: CEFADROXIL
  13. MONTELUKAST SODIUM [Concomitant]
     Active Substance: MONTELUKAST SODIUM

REACTIONS (1)
  - Neoplasm malignant [Recovering/Resolving]
